FAERS Safety Report 12285492 (Version 1)
Quarter: 2016Q2

REPORT INFORMATION
  Report Type: Spontaneous
  Country: US (occurrence: US)
  Receive Date: 20160420
  Receipt Date: 20160420
  Transmission Date: 20160815
  Serious: No
  Sender: FDA-Public Use
  Company Number: CHPA2016US003689

PATIENT
  Age: 70 Year
  Sex: Female

DRUGS (4)
  1. VOLTAREN [Suspect]
     Active Substance: DICLOFENAC SODIUM
     Indication: POLYNEUROPATHY
     Dosage: A LITTLE DOT, BID
     Route: 061
     Dates: start: 20160321, end: 20160322
  2. ATIVAN [Concomitant]
     Active Substance: LORAZEPAM
     Indication: ANXIETY
     Route: 048
  3. ATIVAN [Concomitant]
     Active Substance: LORAZEPAM
     Indication: PANIC ATTACK
  4. CARBIDOPA + L-DOPA [Concomitant]
     Active Substance: CARBIDOPA\LEVODOPA
     Indication: PARKINSON^S DISEASE
     Dosage: UNK
     Route: 048

REACTIONS (5)
  - Product use issue [Unknown]
  - Muscle rigidity [Not Recovered/Not Resolved]
  - Inappropriate schedule of drug administration [Unknown]
  - Hypotension [Not Recovered/Not Resolved]
  - Wrong technique in product usage process [Unknown]

NARRATIVE: CASE EVENT DATE: 20160321
